FAERS Safety Report 5879499-X (Version None)
Quarter: 2008Q3

REPORT INFORMATION
  Report Type: 
  Country: None (occurrence: None)
  Receive Date: 20080912
  Receipt Date: 20080715
  Transmission Date: 20090109
  Serious: Yes (Other)
  Sender: FDA-Public Use
  Company Number: US-PURDUE-USA_2008_0034853

PATIENT
  Age: 53 Year
  Sex: Female
  Weight: 59 kg

DRUGS (11)
  1. OXYCONTIN [Suspect]
     Indication: PAIN
     Dosage: 80 MG, TID
     Dates: start: 19980210, end: 20050718
  2. LORCET-HD [Concomitant]
     Dosage: 10 MG, UNK
  3. XANAX [Concomitant]
     Dosage: 10 MG, UNK
  4. VALIUM [Concomitant]
     Dosage: 10 MG, UNK
  5. CLONIDINE [Concomitant]
     Indication: BLOOD PRESSURE
     Dosage: .2 MG, UNK
  6. PHENERGAN HCL [Concomitant]
  7. SINEQUAN [Concomitant]
  8. PREMARIN [Concomitant]
  9. TENORMIN [Concomitant]
  10. DURICEF [Concomitant]
     Indication: INFECTION
     Dosage: 500 UNK, UNK
     Route: 048
  11. AMBIEN [Concomitant]

REACTIONS (3)
  - IMPAIRED DRIVING ABILITY [None]
  - INCORRECT ROUTE OF DRUG ADMINISTRATION [None]
  - INJECTION SITE INFECTION [None]
